FAERS Safety Report 11124055 (Version 2)
Quarter: 2015Q2

REPORT INFORMATION
  Report Type: Spontaneous
  Country: FR (occurrence: FR)
  Receive Date: 20150520
  Receipt Date: 20150617
  Transmission Date: 20150821
  Serious: Yes (Hospitalization)
  Sender: FDA-Public Use
  Company Number: FR-ACCORD-030776

PATIENT
  Age: 44 Year
  Sex: Male

DRUGS (8)
  1. PIPERACILLIN W/TAZOBACTAM MYLAN [Suspect]
     Active Substance: PIPERACILLIN SODIUM\TAZOBACTAM SODIUM
     Indication: STREPTOCOCCAL BACTERAEMIA
     Dosage: 4 G/ 500 MG, POUDRE POUR SOLUTION POUR PERFUSION,?DOSE WAS INCREASE TO 12 TO 16 GM/DAY
     Route: 042
     Dates: start: 20150326, end: 20150415
  2. IRINOTECAN HOSPIRA [Suspect]
     Active Substance: IRINOTECAN
     Indication: ADENOCARCINOMA PANCREAS
     Dates: start: 20150319, end: 20150319
  3. OXALIPLATIN HOSPIRA [Suspect]
     Active Substance: OXALIPLATIN
     Indication: ADENOCARCINOMA PANCREAS
     Route: 042
     Dates: start: 20150319, end: 20150319
  4. ACCORD FLUOROURACIL [Suspect]
     Active Substance: FLUOROURACIL
     Indication: ADENOCARCINOMA PANCREAS
     Dosage: 708 MG (BOLUS) AND 4228 MG OVER 48 HOURS (MEDICAL DIFFUSER)
     Route: 042
     Dates: start: 20150319, end: 20150321
  5. GENTAMICINE PANPHARMA [Suspect]
     Active Substance: GENTAMICIN
     Indication: BACTERAEMIA
     Dates: start: 20150326, end: 20150327
  6. CLINDAMYCIN [Suspect]
     Active Substance: CLINDAMYCIN\CLINDAMYCIN PHOSPHATE
     Indication: STREPTOCOCCAL BACTERAEMIA
     Dosage: 600 MG/ 4 ML, EVERY 3 DAYS
     Route: 042
     Dates: start: 20150403, end: 20150410
  7. AMIKACINE MYLAN [Suspect]
     Active Substance: AMIKACIN
     Indication: PRODUCT USED FOR UNKNOWN INDICATION
     Dates: start: 20150403, end: 20150407
  8. DALACINE [Suspect]
     Active Substance: CLINDAMYCIN HYDROCHLORIDE
     Indication: STREPTOCOCCAL BACTERAEMIA
     Route: 048
     Dates: start: 20150410, end: 20150415

REACTIONS (9)
  - Thrombocytopenia [Recovered/Resolved]
  - Cholestasis [Unknown]
  - Asthenia [Unknown]
  - Agranulocytosis [Recovered/Resolved]
  - Anaemia [Recovered/Resolved]
  - Pyrexia [Unknown]
  - Bacteraemia [Unknown]
  - Dysphagia [Unknown]
  - Leukopenia [Unknown]

NARRATIVE: CASE EVENT DATE: 20150321
